FAERS Safety Report 5872900-7 (Version None)
Quarter: 2008Q3

REPORT INFORMATION
  Report Type: 
  Country: None (occurrence: None)
  Receive Date: 20080905
  Receipt Date: 20080826
  Transmission Date: 20090109
  Serious: Yes (Other)
  Sender: FDA-Public Use
  Company Number: MA-PFIZER INC-2008061344

PATIENT
  Age: 60 Year
  Sex: Male
  Weight: 63 kg

DRUGS (2)
  1. LYRICA [Suspect]
     Indication: SCIATICA
     Route: 048
  2. SOLU-MEDROL [Suspect]
     Indication: SCIATICA
     Route: 030
     Dates: start: 20080715, end: 20080715

REACTIONS (3)
  - ERYTHEMA [None]
  - FACE OEDEMA [None]
  - INSOMNIA [None]
